FAERS Safety Report 11361467 (Version 1)
Quarter: 2015Q3

REPORT INFORMATION
  Report Type: Spontaneous
  Country: DE (occurrence: DE)
  Receive Date: 20150810
  Receipt Date: 20150810
  Transmission Date: 20151125
  Serious: Yes (Other)
  Sender: FDA-Public Use
  Company Number: DE-GLAXOSMITHKLINE-DE2015GSK112373

PATIENT
  Age: 30 Year
  Sex: Male

DRUGS (4)
  1. SEROQUEL [Interacting]
     Active Substance: QUETIAPINE FUMARATE
     Indication: BIPOLAR I DISORDER
     Dosage: 200 DF, QD
     Dates: start: 20130319, end: 20130705
  2. BUPROPION. [Suspect]
     Active Substance: BUPROPION
     Indication: PRODUCT USED FOR UNKNOWN INDICATION
     Dosage: 150 DF, QD
     Dates: start: 20130319
  3. QUILONUM RETARD [Concomitant]
     Active Substance: LITHIUM CARBONATE
     Dosage: 900 DF, QD
     Dates: start: 20130621
  4. LITHIUM CO3 [Concomitant]
     Dosage: 450 DF, QD
     Dates: start: 20130618, end: 20130620

REACTIONS (4)
  - Urinary incontinence [Recovering/Resolving]
  - Drug interaction [Unknown]
  - Somnambulism [Recovering/Resolving]
  - Sexual dysfunction [Recovering/Resolving]

NARRATIVE: CASE EVENT DATE: 20130626
